FAERS Safety Report 5964807-1 (Version None)
Quarter: 2008Q4

REPORT INFORMATION
  Report Type: 
  Country: None (occurrence: None)
  Receive Date: 20081125
  Receipt Date: 20080429
  Transmission Date: 20090506
  Serious: No
  Sender: FDA-Public Use
  Company Number: US-BAYER-200811786BCC

PATIENT
  Age: 36 Year
  Sex: Female
  Weight: 150 kg

DRUGS (2)
  1. MIDOL (FORMULATION NOT SPECIFIED) [Suspect]
     Indication: FLATULENCE
     Dates: start: 20080201
  2. INSULIN [Concomitant]

REACTIONS (2)
  - ABDOMINAL DISTENSION [None]
  - FLATULENCE [None]
